FAERS Safety Report 10249047 (Version 1)
Quarter: 2014Q2

REPORT INFORMATION
  Report Type: Spontaneous
  Country: US (occurrence: None)
  Receive Date: 20140618
  Receipt Date: 20140618
  Transmission Date: 20141212
  Serious: Yes (Hospitalization)
  Sender: FDA-Public Use
  Company Number: None

PATIENT
  Age: 73 Year
  Sex: Female
  Weight: 60 kg

DRUGS (2)
  1. SUNITINIB MALATE (SU011248 L-MALATE; SUTENT) [Suspect]
     Dates: start: 20140422
  2. SUNITINIB MALATE (SU011248 L-MALATE; SUTENT) [Suspect]
     Dates: start: 20140422

REACTIONS (2)
  - Rash pustular [None]
  - Neutropenia [None]
